FAERS Safety Report 22650375 (Version 1)
Quarter: 2023Q2

REPORT INFORMATION
  Report Type: Spontaneous
  Country: US (occurrence: US)
  Receive Date: 20230628
  Receipt Date: 20230628
  Transmission Date: 20230722
  Serious: No
  Sender: FDA-Public Use
  Company Number: US-MAYNE PHARMA-2023TMD00003

PATIENT
  Age: 66 Year
  Sex: Female
  Weight: 58.957 kg

DRUGS (4)
  1. IMVEXXY [Suspect]
     Active Substance: ESTRADIOL
     Indication: Postmenopause
     Dosage: 4 ?G, 2X/WEEK (WEDNESDAYS AND SUNDAYS)
     Route: 067
     Dates: start: 20221023, end: 20221127
  2. IMVEXXY [Suspect]
     Active Substance: ESTRADIOL
     Indication: Vulvovaginal dryness
  3. IMVEXXY [Suspect]
     Active Substance: ESTRADIOL
     Indication: Vulvovaginal discomfort
  4. OMEPRAZOLE [Concomitant]
     Active Substance: OMEPRAZOLE
     Dosage: 20 MG, 1X/DAY EVERY MORNING
     Route: 048

REACTIONS (1)
  - Vaginal haemorrhage [Not Recovered/Not Resolved]

NARRATIVE: CASE EVENT DATE: 20221101
